FAERS Safety Report 25988893 (Version 1)
Quarter: 2025Q4

REPORT INFORMATION
  Report Type: Report from Study
  Country: US (occurrence: US)
  Receive Date: 20251103
  Receipt Date: 20251103
  Transmission Date: 20260118
  Serious: Yes (Other)
  Sender: ALEXION PHARMACEUTICALS
  Company Number: US-ASTRAZENECA-202510NAM030111US

PATIENT
  Age: 71 Year
  Sex: Male

DRUGS (1)
  1. OLAPARIB [Suspect]
     Active Substance: OLAPARIB
     Indication: Prostate cancer
     Dosage: 300 MILLIGRAM, BID
     Dates: start: 202404

REACTIONS (3)
  - Diarrhoea [Recovered/Resolved]
  - Cerebrovascular accident [Unknown]
  - Foot operation [Unknown]

NARRATIVE: CASE EVENT DATE: 20240412
